FAERS Safety Report 14559313 (Version 4)
Quarter: 2018Q1

REPORT INFORMATION
  Report Type: Spontaneous
  Country: PT (occurrence: PT)
  Receive Date: 20180221
  Receipt Date: 20180328
  Transmission Date: 20180509
  Serious: Yes (Other)
  Sender: FDA-Public Use
  Company Number: PT-PFIZER INC-2018068704

PATIENT
  Age: 65 Year
  Sex: Female

DRUGS (4)
  1. LORENIN [Suspect]
     Active Substance: LORAZEPAM
     Indication: ANXIETY
     Dosage: 2.5 MG, AS NEEDED
     Route: 048
     Dates: start: 1998
  2. CENTRUM [Concomitant]
     Active Substance: VITAMINS
     Indication: SUPPLEMENTATION THERAPY
     Dosage: UNK
     Route: 048
     Dates: start: 2004
  3. LORENIN [Suspect]
     Active Substance: LORAZEPAM
     Indication: INSOMNIA
  4. BETASERC [Concomitant]
     Active Substance: BETAHISTINE
     Indication: DIZZINESS
     Dosage: UNK
     Route: 048
     Dates: start: 2013

REACTIONS (6)
  - Choking [Recovered/Resolved]
  - Thyroid cyst [Recovered/Resolved]
  - Intentional product use issue [Not Recovered/Not Resolved]
  - Haemangioma [Not Recovered/Not Resolved]
  - Dyspnoea [Recovered/Resolved]
  - Goitre [Recovered/Resolved]

NARRATIVE: CASE EVENT DATE: 2014
